FAERS Safety Report 21228735 (Version 6)
Quarter: 2023Q1

REPORT INFORMATION
  Report Type: Report from Study
  Country: CN (occurrence: CN)
  Receive Date: 20220818
  Receipt Date: 20230317
  Transmission Date: 20230418
  Serious: Yes (Hospitalization)
  Sender: FDA-Public Use
  Company Number: CN-GSK-CN2022117938

PATIENT

DRUGS (7)
  1. BELANTAMAB MAFODOTIN [Suspect]
     Active Substance: BELANTAMAB MAFODOTIN
     Indication: Plasma cell myeloma
     Dosage: 112.50 MG, CYC (2.50 MG/KG)
     Route: 042
     Dates: start: 20211221, end: 20220111
  2. BELANTAMAB MAFODOTIN [Suspect]
     Active Substance: BELANTAMAB MAFODOTIN
     Dosage: 85.50 MG, CYC (1.90 MG/KG)
     Route: 042
     Dates: start: 20220412
  3. BORTEZOMIB [Suspect]
     Active Substance: BORTEZOMIB
     Indication: Plasma cell myeloma
     Dosage: 1.82 MG, CYC (1.30 MG/M2)
     Route: 058
     Dates: start: 20211221, end: 20220121
  4. BORTEZOMIB [Suspect]
     Active Substance: BORTEZOMIB
     Dosage: 1.4 MG, CYC (1.00 MG/M2)
     Route: 058
     Dates: start: 20220210
  5. DEXAMETHASONE [Suspect]
     Active Substance: DEXAMETHASONE
     Indication: Plasma cell myeloma
     Dosage: 20 MG, CYC
     Route: 042
     Dates: start: 20211221
  6. DEXAMETHASONE [Suspect]
     Active Substance: DEXAMETHASONE
     Indication: Plasma cell myeloma
     Dosage: 20 MG, CYC
     Route: 048
     Dates: start: 20211222
  7. HUMAN IMMUNOGLOBULIN G [Concomitant]
     Active Substance: HUMAN IMMUNOGLOBULIN G
     Indication: Hypogammaglobulinaemia
     Dosage: 20 G, SINGLE
     Route: 042
     Dates: start: 20220812, end: 20220812

REACTIONS (1)
  - Hypogammaglobulinaemia [Recovered/Resolved]

NARRATIVE: CASE EVENT DATE: 20220812
